FAERS Safety Report 4647745-6 (Version None)
Quarter: 2005Q2

REPORT INFORMATION
  Report Type: 
  Country: None (occurrence: None)
  Receive Date: 20050426
  Receipt Date: 20050413
  Transmission Date: 20051028
  Serious: Yes (Other)
  Sender: FDA-Public Use
  Company Number: 2005060434

PATIENT
  Age: 44 Year
  Sex: Female

DRUGS (1)
  1. BEXTRA [Suspect]
     Indication: ILL-DEFINED DISORDER
     Dosage: 40 MG ORAL
     Route: 048
     Dates: start: 20050301

REACTIONS (3)
  - ERYTHEMA [None]
  - FEELING HOT [None]
  - RASH PRURITIC [None]
